FAERS Safety Report 18655052 (Version 2)
Quarter: 2021Q2

REPORT INFORMATION
  Report Type: Spontaneous
  Country: US (occurrence: US)
  Receive Date: 20201223
  Receipt Date: 20210421
  Transmission Date: 20210717
  Serious: Yes (Hospitalization, Other)
  Sender: FDA-Public Use
  Company Number: US-GILEAD-2020-0509302

PATIENT
  Age: 26 Year
  Sex: Male
  Weight: 153 kg

DRUGS (29)
  1. ONDANSETRON [Concomitant]
     Active Substance: ONDANSETRON
  2. TRAMADOL. [Concomitant]
     Active Substance: TRAMADOL
  3. FAMOTIDINE. [Concomitant]
     Active Substance: FAMOTIDINE
  4. METRONIDAZOLE. [Concomitant]
     Active Substance: METRONIDAZOLE
  5. MORPHINE [Concomitant]
     Active Substance: MORPHINE
  6. PREDNISONE. [Concomitant]
     Active Substance: PREDNISONE
  7. MYCOPHENOLIC ACID. [Concomitant]
     Active Substance: MYCOPHENOLIC ACID
  8. SODIUM BICARBONATE. [Concomitant]
     Active Substance: SODIUM BICARBONATE
  9. INSULIN [Concomitant]
     Active Substance: INSULIN NOS
  10. STRIBILD [Suspect]
     Active Substance: COBICISTAT\ELVITEGRAVIR\EMTRICITABINE\TENOFOVIR DISOPROXIL FUMARATE
     Dosage: UNK
     Route: 048
     Dates: start: 2012, end: 20150715
  11. SOLU?MEDROL [Concomitant]
     Active Substance: METHYLPREDNISOLONE SODIUM SUCCINATE
  12. TACROLIMUS. [Concomitant]
     Active Substance: TACROLIMUS
  13. VITAMIN B AND C COMPLEX [Concomitant]
  14. STRIBILD [Suspect]
     Active Substance: COBICISTAT\ELVITEGRAVIR\EMTRICITABINE\TENOFOVIR DISOPROXIL FUMARATE
     Indication: HIV INFECTION
     Dosage: UNK
     Route: 048
     Dates: start: 2010
  15. VELPHORO [Concomitant]
     Active Substance: SUCROFERRIC OXYHYDROXIDE
  16. EPIVIR [Concomitant]
     Active Substance: LAMIVUDINE
  17. TIVICAY [Concomitant]
     Active Substance: DOLUTEGRAVIR SODIUM
  18. TRIUMEQ [Concomitant]
     Active Substance: ABACAVIR SULFATE\DOLUTEGRAVIR SODIUM\LAMIVUDINE
  19. PIPERACILLIN AND TAZOBACTAM [Concomitant]
     Active Substance: PIPERACILLIN SODIUM\TAZOBACTAM SODIUM
  20. CALCIUM ACETATE. [Concomitant]
     Active Substance: CALCIUM ACETATE
  21. VALGANCICLOVIR. [Concomitant]
     Active Substance: VALGANCICLOVIR
  22. ZIAGEN [Concomitant]
     Active Substance: ABACAVIR SULFATE
  23. ATRIPLA [Suspect]
     Active Substance: EFAVIRENZ\EMTRICITABINE\TENOFOVIR DISOPROXIL FUMARATE
     Indication: HIV INFECTION
     Dosage: UNK
     Route: 048
     Dates: start: 2010, end: 2012
  24. VANCOMYCIN [Concomitant]
     Active Substance: VANCOMYCIN
  25. ORPHENADRINE [Concomitant]
     Active Substance: ORPHENADRINE
  26. VITAMIN D NOS [Concomitant]
     Active Substance: VITAMIN D NOS
  27. RENA?VITE [Concomitant]
     Active Substance: ASCORBIC ACID\BIOTIN\CALCIUM PANTOTHENATE\CYANOCOBALAMIN\FOLIC ACID\NIACINAMIDE\PYRIDOXINE HYDROCHLORIDE\RIBOFLAVIN\THIAMINE MONONITRATE
  28. AMLODIPINE [Concomitant]
     Active Substance: AMLODIPINE BESYLATE
  29. VELPHORO [Concomitant]
     Active Substance: SUCROFERRIC OXYHYDROXIDE

REACTIONS (8)
  - Anhedonia [Unknown]
  - Renal failure [Not Recovered/Not Resolved]
  - Chronic kidney disease-mineral and bone disorder [Not Recovered/Not Resolved]
  - Pain [Unknown]
  - Anaemia [Not Recovered/Not Resolved]
  - End stage renal disease [Unknown]
  - Emotional distress [Unknown]
  - Anxiety [Unknown]

NARRATIVE: CASE EVENT DATE: 20150712
